FAERS Safety Report 6902654-4 (Version None)
Quarter: 2010Q3

REPORT INFORMATION
  Report Type: 
  Country: None (occurrence: None)
  Receive Date: 20100803
  Receipt Date: 20080701
  Transmission Date: 20110219
  Serious: No
  Sender: FDA-Public Use
  Company Number: US-PFIZER INC-2008064652

PATIENT
  Age: 77 Year
  Sex: Female

DRUGS (6)
  1. LYRICA [Suspect]
  2. ZOLOFT [Concomitant]
  3. ATENOLOL [Concomitant]
  4. VICODIN [Concomitant]
  5. OXYCODONE [Concomitant]
  6. SYNTHROID [Concomitant]

REACTIONS (2)
  - ABNORMAL DREAMS [None]
  - ANXIETY [None]
